FAERS Safety Report 9856881 (Version 2)
Quarter: 2014Q1

REPORT INFORMATION
  Report Type: Spontaneous
  Country: CN (occurrence: CN)
  Receive Date: 20140130
  Receipt Date: 20140325
  Transmission Date: 20141002
  Serious: Yes (Hospitalization, Other)
  Sender: FDA-Public Use
  Company Number: PHHY2014CN010238

PATIENT
  Age: 64 Year
  Sex: Male

DRUGS (14)
  1. NEORAL [Suspect]
     Indication: IMMUNOSUPPRESSANT DRUG THERAPY
  2. NEORAL [Interacting]
     Dosage: 30 MG, BID (1 MG/KG/DAY)
  3. NEORAL [Interacting]
     Dosage: 30 MG, BID
  4. IBUPROFEN [Interacting]
     Indication: MYALGIA
     Dosage: 2 DF
  5. ACETYLSALICYLIC ACID [Interacting]
     Indication: MYOCARDIAL ISCHAEMIA
  6. RAPAMUNE [Interacting]
     Indication: IMMUNOSUPPRESSANT DRUG THERAPY
     Dosage: 1 MG, DAILY
  7. HERBAL EXTRACT NOS [Interacting]
     Dosage: 500 ML
  8. PREDNISOLONE [Concomitant]
     Indication: IMMUNOSUPPRESSANT DRUG THERAPY
  9. TACROLIMUS [Concomitant]
  10. AZATHIOPRINE [Concomitant]
  11. VALSARTAN [Concomitant]
     Indication: MYOCARDIAL ISCHAEMIA
  12. FAMOTIDINE [Concomitant]
     Indication: MYOCARDIAL ISCHAEMIA
  13. GLICLAZIDE [Concomitant]
     Indication: MYOCARDIAL ISCHAEMIA
  14. DILTIAZEM [Concomitant]
     Indication: MYOCARDIAL ISCHAEMIA

REACTIONS (11)
  - Nephropathy toxic [Unknown]
  - Toxicity to various agents [Unknown]
  - Immunosuppressant drug level increased [Unknown]
  - Blood creatinine increased [Recovering/Resolving]
  - Glomerular filtration rate decreased [Unknown]
  - Blood urea increased [Unknown]
  - Blood potassium increased [Recovering/Resolving]
  - Proteinuria [Unknown]
  - Kidney transplant rejection [Unknown]
  - Herbal interaction [Unknown]
  - Drug interaction [Unknown]
